FAERS Safety Report 17969643 (Version 3)
Quarter: 2020Q3

REPORT INFORMATION
  Report Type: Report from Study
  Country: DE (occurrence: DE)
  Receive Date: 20200701
  Receipt Date: 20200731
  Transmission Date: 20201103
  Serious: Yes (Hospitalization, Other)
  Sender: FDA-Public Use
  Company Number: DE-MYLANLABS-2020M1059309

PATIENT
  Age: 71 Year
  Sex: Female
  Weight: 67 kg

DRUGS (13)
  1. CARBOPLATIN. [Suspect]
     Active Substance: CARBOPLATIN
     Dosage: 276.7 MILLIGRAM, QD
     Route: 065
     Dates: start: 20191021, end: 20191021
  2. PEMBROLIZUMAB. [Suspect]
     Active Substance: PEMBROLIZUMAB
     Indication: NON-SMALL CELL LUNG CANCER
     Dosage: 200 MILLIGRAM, QD
     Route: 065
     Dates: start: 20191021, end: 20191021
  3. CANDESARTAN RATIOPHARM [Concomitant]
     Indication: PRODUCT USED FOR UNKNOWN INDICATION
     Dosage: 32 MILLIGRAM, QD, DAILY
     Route: 048
  4. DEXAMETHASONE SODIUM PHOSPHATE. [Concomitant]
     Active Substance: DEXAMETHASONE SODIUM PHOSPHATE
     Dosage: 4 MILLIGRAM, QD
     Route: 048
     Dates: start: 20191115, end: 20191118
  5. FOLVERLAN [Concomitant]
     Active Substance: FOLIC ACID
     Indication: PRODUCT USED FOR UNKNOWN INDICATION
     Dosage: 4 MICROGRAM, QD (4 MICROGRAM, DAILY)
     Route: 048
  6. CARBOPLATIN. [Suspect]
     Active Substance: CARBOPLATIN
     Indication: NON-SMALL CELL LUNG CANCER
     Dosage: 276.6 MILLIGRAM, QD
     Route: 065
     Dates: start: 20191021, end: 20191021
  7. PEMETREXED. [Suspect]
     Active Substance: PEMETREXED
     Indication: NON-SMALL CELL LUNG CANCER
     Dosage: 660 MILLIGRAM, QD
     Route: 065
     Dates: start: 20191021, end: 20191021
  8. METOPROLOL RATIOPHARM              /00376902/ [Concomitant]
     Indication: PRODUCT USED FOR UNKNOWN INDICATION
     Dosage: 190 MILLIGRAM, QD (95 MILLIGRAM, TWICE DAILY)
     Route: 048
  9. APREPITANT. [Concomitant]
     Active Substance: APREPITANT
     Indication: PRODUCT USED FOR UNKNOWN INDICATION
     Dosage: 80 MILLIGRAM, QD (80 MILLIGRAM, DAILY)
     Route: 048
     Dates: start: 201910, end: 20191023
  10. METOPROLOL RATIOPHARM              /00376902/ [Concomitant]
     Dosage: 190 UNK
     Route: 065
  11. ASS RATIOPHARM [Concomitant]
     Active Substance: ASPIRIN
     Indication: PRODUCT USED FOR UNKNOWN INDICATION
     Dosage: 100 MILLIGRAM, QD (100 MILLIGRAM, DAILY)
     Route: 048
  12. TOREM                              /01036501/ [Concomitant]
     Active Substance: TORSEMIDE
     Indication: PRODUCT USED FOR UNKNOWN INDICATION
     Dosage: 5 MILLIGRAM, QD (5 MILLIGRAM, DAILY)
     Route: 048
  13. DEXAMETHASONE SODIUM PHOSPHATE. [Concomitant]
     Active Substance: DEXAMETHASONE SODIUM PHOSPHATE
     Indication: PRODUCT USED FOR UNKNOWN INDICATION
     Dosage: 8 MILLIGRAM, QD (8 MILLIGRAM, DAILY)
     Route: 048
     Dates: start: 201910, end: 20191023

REACTIONS (3)
  - Duodenitis [Recovering/Resolving]
  - Gastritis [Recovering/Resolving]
  - Bone marrow failure [Recovering/Resolving]

NARRATIVE: CASE EVENT DATE: 20191030
